FAERS Safety Report 4483363-0 (Version None)
Quarter: 2004Q4

REPORT INFORMATION
  Report Type: 
  Country: None (occurrence: None)
  Receive Date: 20041020
  Receipt Date: 20040930
  Transmission Date: 20050328
  Serious: Yes (Life-Threatening)
  Sender: FDA-Public Use
  Company Number: GBS040815464

PATIENT
  Age: 34 Year
  Sex: Female

DRUGS (2)
  1. FLUOXETIN                             (FLUOXETINE HYDROCHLOR [Suspect]
     Dosage: 40 MG DAY
     Route: 048
     Dates: start: 20021101
  2. ZOPICLONE (ZOPLICLONE) [Concomitant]

REACTIONS (2)
  - ALCOHOL POISONING [None]
  - ROAD TRAFFIC ACCIDENT [None]
